FAERS Safety Report 11893184 (Version 1)
Quarter: 2016Q1

REPORT INFORMATION
  Report Type: Spontaneous
  Country: TW (occurrence: TW)
  Receive Date: 20160106
  Receipt Date: 20160106
  Transmission Date: 20160526
  Serious: Yes (Other)
  Sender: FDA-Public Use
  Company Number: PHHY2015TW171860

PATIENT

DRUGS (14)
  1. TEGAFUR [Suspect]
     Active Substance: TEGAFUR
     Indication: DISEASE RECURRENCE
  2. RAPAMYCIN [Suspect]
     Active Substance: SIROLIMUS
     Indication: LIP AND/OR ORAL CAVITY CANCER
     Dosage: 2 MG, QD
     Route: 065
  3. CYCLOPHOSPHAMIDE. [Suspect]
     Active Substance: CYCLOPHOSPHAMIDE
     Indication: DISEASE RECURRENCE
  4. CISPLATIN. [Suspect]
     Active Substance: CISPLATIN
     Indication: LIP AND/OR ORAL CAVITY CANCER
  5. URACIL [Suspect]
     Active Substance: URACIL
     Indication: DISEASE RECURRENCE
  6. RAPAMYCIN [Suspect]
     Active Substance: SIROLIMUS
     Indication: DISEASE RECURRENCE
  7. HYDROXYCHLOROQUINE [Suspect]
     Active Substance: HYDROXYCHLOROQUINE
     Indication: DISEASE RECURRENCE
     Dosage: 400 MG, QD
     Route: 065
  8. CISPLATIN. [Suspect]
     Active Substance: CISPLATIN
     Indication: DISEASE RECURRENCE
     Dosage: 30 UNK, UNK
     Route: 065
  9. CYCLOPHOSPHAMIDE. [Suspect]
     Active Substance: CYCLOPHOSPHAMIDE
     Indication: LIP AND/OR ORAL CAVITY CANCER
     Dosage: 50 MG, QD
     Route: 065
  10. TEGAFUR [Suspect]
     Active Substance: TEGAFUR
     Indication: LIP AND/OR ORAL CAVITY CANCER
     Route: 065
  11. METHOTREXATE [Suspect]
     Active Substance: METHOTREXATE
     Indication: LIP AND/OR ORAL CAVITY CANCER
     Dosage: 50 MG, UNK
     Route: 065
  12. URACIL [Suspect]
     Active Substance: URACIL
     Indication: LIP AND/OR ORAL CAVITY CANCER
     Route: 065
  13. METHOTREXATE [Suspect]
     Active Substance: METHOTREXATE
     Indication: DISEASE RECURRENCE
  14. HYDROXYCHLOROQUINE [Suspect]
     Active Substance: HYDROXYCHLOROQUINE
     Indication: LIP AND/OR ORAL CAVITY CANCER

REACTIONS (1)
  - Cardiotoxicity [Recovered/Resolved]
